FAERS Safety Report 8291450-4 (Version None)
Quarter: 2012Q2

REPORT INFORMATION
  Report Type: 
  Country: None (occurrence: None)
  Receive Date: 20120412
  Receipt Date: 20120330
  Transmission Date: 20120825
  Serious: Yes (Other)
  Sender: FDA-Public Use
  Company Number: 2012SP018166

PATIENT
  Age: 57 Year
  Sex: Male

DRUGS (12)
  1. FLONASE [Concomitant]
  2. RIBAVIRIN [Suspect]
     Indication: HEPATITIS C
     Dosage: 3 DF;QPM;PO
     Route: 048
     Dates: start: 20110304, end: 20120105
  3. TRAZODONE HCL [Concomitant]
  4. MK-7009 [Suspect]
     Indication: HEPATITIS C
     Dosage: 2 DF;QAM;PO
     Route: 048
     Dates: start: 20110304, end: 20120106
  5. AMBIEN [Concomitant]
  6. METFORMIN HCL [Suspect]
     Indication: PRODUCT USED FOR UNKNOWN INDICATION
     Dosage: 500 MG;BID;PO ; 500 MG;QD;PO
     Route: 048
     Dates: start: 20110925, end: 20111205
  7. METFORMIN HCL [Suspect]
     Indication: PRODUCT USED FOR UNKNOWN INDICATION
     Dosage: 500 MG;BID;PO ; 500 MG;QD;PO
     Route: 048
     Dates: start: 20110925, end: 20111205
  8. RAMIPRIL [Suspect]
     Indication: PRODUCT USED FOR UNKNOWN INDICATION
     Dosage: 2.5 MG;QD;PO
     Route: 048
     Dates: start: 20090301, end: 20111229
  9. PEGINTERFERON ALFA-2A [Suspect]
     Indication: HEPATITIS C
     Dosage: 180 MCG;QW;SC
     Route: 058
     Dates: start: 20110304, end: 20111230
  10. OMEPRAZOLE [Concomitant]
  11. PIROXICAM [Suspect]
     Indication: PRODUCT USED FOR UNKNOWN INDICATION
     Dosage: 20 MG;QD;PO
     Route: 048
     Dates: start: 20090301, end: 20111229
  12. LEVOCETIRIZINE DIHYDROCHLORIDE [Concomitant]

REACTIONS (5)
  - ALANINE AMINOTRANSFERASE INCREASED [None]
  - DIABETES MELLITUS [None]
  - ASPARTATE AMINOTRANSFERASE INCREASED [None]
  - BLOOD POTASSIUM INCREASED [None]
  - HEPATITIS C [None]
